FAERS Safety Report 24752862 (Version 1)
Quarter: 2024Q4

REPORT INFORMATION
  Report Type: Spontaneous
  Country: GB (occurrence: GB)
  Receive Date: 20241219
  Receipt Date: 20241219
  Transmission Date: 20250115
  Serious: Yes (Hospitalization)
  Sender: ROCHE
  Company Number: None

PATIENT
  Age: 44 Year
  Sex: Male

DRUGS (4)
  1. ALTEPLASE [Suspect]
     Active Substance: ALTEPLASE
     Indication: Ischaemic stroke
     Dosage: 4ML BOLUS FOLLOWED BY 37ML INFUSION BUT INFUSION STOPPED AFTER 18ML
     Route: 065
     Dates: end: 20241209
  2. ALTEPLASE [Suspect]
     Active Substance: ALTEPLASE
     Dosage: 4ML BOLUS FOLLOWED BY 37ML INFUSION BUT INFUSION STOPPED AFTER 18ML
     Route: 065
  3. SERETIDE [Concomitant]
     Active Substance: FLUTICASONE PROPIONATE\SALMETEROL XINAFOATE
     Indication: Product used for unknown indication
  4. VENTOLIN [Concomitant]
     Active Substance: ALBUTEROL SULFATE
     Indication: Product used for unknown indication

REACTIONS (4)
  - Arthralgia [Unknown]
  - Haemorrhage [Recovering/Resolving]
  - Contusion [Not Recovered/Not Resolved]
  - Joint swelling [Not Recovered/Not Resolved]

NARRATIVE: CASE EVENT DATE: 20241209
